FAERS Safety Report 5775604-4 (Version None)
Quarter: 2008Q2

REPORT INFORMATION
  Report Type: 
  Country: None (occurrence: None)
  Receive Date: 20080617
  Receipt Date: 20080605
  Transmission Date: 20081010
  Serious: Yes (Other)
  Sender: FDA-Public Use
  Company Number: US-PFIZER INC-2008047997

PATIENT
  Age: 30 Year
  Sex: Male
  Weight: 77.1 kg

DRUGS (2)
  1. GEODON [Suspect]
     Indication: SCHIZOPHRENIA
     Dates: start: 20080101, end: 20080101
  2. METOPROLOL [Concomitant]
     Indication: BLOOD PRESSURE

REACTIONS (5)
  - BRADYPHRENIA [None]
  - HYPERPYREXIA [None]
  - MANIA [None]
  - MUSCULOSKELETAL STIFFNESS [None]
  - NEUROLEPTIC MALIGNANT SYNDROME [None]
